FAERS Safety Report 24192181 (Version 3)
Quarter: 2024Q4

REPORT INFORMATION
  Report Type: Report from Study
  Country: CA (occurrence: CA)
  Receive Date: 20240809
  Receipt Date: 20241004
  Transmission Date: 20250115
  Serious: Yes (Other)
  Sender: NOVO NORDISK
  Company Number: CA-NOVOPROD-1263437

PATIENT
  Sex: Female

DRUGS (3)
  1. BUPROPION [Concomitant]
     Active Substance: BUPROPION
     Indication: Product used for unknown indication
     Dosage: UNK
     Dates: start: 20210701
  2. WEGOVY [Suspect]
     Active Substance: SEMAGLUTIDE
     Indication: Weight control
     Dosage: UNK, QW
     Route: 058
     Dates: start: 20240628
  3. WEGOVY [Suspect]
     Active Substance: SEMAGLUTIDE
     Dosage: QW
     Route: 058
     Dates: start: 20240726, end: 20240726

REACTIONS (8)
  - Gastrooesophageal reflux disease [Not Recovered/Not Resolved]
  - Device mechanical issue [Unknown]
  - Wrong dose [Unknown]
  - Headache [Recovered/Resolved]
  - Abdominal discomfort [Recovering/Resolving]
  - Fatigue [Recovering/Resolving]
  - Weight decreased [Unknown]
  - Wrong technique in product usage process [Unknown]

NARRATIVE: CASE EVENT DATE: 20240726
